FAERS Safety Report 17570405 (Version 1)
Quarter: 2020Q1

REPORT INFORMATION
  Report Type: Spontaneous
  Country: US (occurrence: US)
  Receive Date: 20200316
  Receipt Date: 20200316
  Transmission Date: 20200409
  Serious: No
  Sender: FDA-Public Use
  Company Number: None

PATIENT
  Sex: Female

DRUGS (2)
  1. IMATINIB MESYLATE 100MG TEVA PHARMACEUTICALS USA [Suspect]
     Active Substance: IMATINIB MESYLATE
     Indication: CHRONIC MYELOID LEUKAEMIA
     Route: 048
     Dates: start: 201905
  2. IMATINIB MESYLATE 100MG TEVA PHARMACEUTICALS USA [Suspect]
     Active Substance: IMATINIB MESYLATE
     Indication: PHILADELPHIA CHROMOSOME POSITIVE
     Route: 048
     Dates: start: 201905

REACTIONS (4)
  - Visual impairment [None]
  - Weight decreased [None]
  - Mood swings [None]
  - Apathy [None]
